FAERS Safety Report 9959702 (Version 1)
Quarter: 2014Q1

REPORT INFORMATION
  Report Type: Spontaneous
  Country: US (occurrence: None)
  Receive Date: 20140228
  Receipt Date: 20140228
  Transmission Date: 20141002
  Serious: No
  Sender: FDA-Public Use
  Company Number: AG-2013-015577

PATIENT
  Sex: Male
  Weight: 61.2 kg

DRUGS (10)
  1. MERCAPTOPURINE [Suspect]
     Indication: T-CELL TYPE ACUTE LEUKAEMIA
     Route: 048
  2. NELARABINE [Suspect]
     Indication: T-CELL TYPE ACUTE LEUKAEMIA
     Route: 042
  3. VINCRISTINE [Suspect]
     Indication: T-CELL TYPE ACUTE LEUKAEMIA
     Route: 042
  4. DEXAMETHASONE [Suspect]
     Indication: T-CELL TYPE ACUTE LEUKAEMIA
     Route: 048
  5. DOXORUBICIN [Suspect]
     Indication: T-CELL TYPE ACUTE LEUKAEMIA
     Route: 042
  6. PEG-ASPARAGINASE [Suspect]
     Indication: T-CELL TYPE ACUTE LEUKAEMIA
     Route: 030
  7. METHOTREXATE [Suspect]
     Indication: T-CELL TYPE ACUTE LEUKAEMIA
     Route: 037
  8. CYCLOPHOSPHAMIDE [Suspect]
     Indication: T-CELL TYPE ACUTE LEUKAEMIA
     Route: 042
  9. CYTARABINE [Suspect]
     Indication: T-CELL TYPE ACUTE LEUKAEMIA
  10. THIOGUANINE [Suspect]
     Indication: T-CELL TYPE ACUTE LEUKAEMIA
     Route: 048

REACTIONS (3)
  - Febrile neutropenia [None]
  - Hypotension [None]
  - Sepsis [None]
